FAERS Safety Report 4462286-7 (Version None)
Quarter: 2004Q3

REPORT INFORMATION
  Report Type: 
  Country: None (occurrence: None)
  Receive Date: 20040924
  Receipt Date: 20040913
  Transmission Date: 20050211
  Serious: Yes (Other)
  Sender: FDA-Public Use
  Company Number: 2004066613

PATIENT
  Age: 4 Year
  Sex: Female

DRUGS (4)
  1. ZYRTEC [Suspect]
     Indication: ILL-DEFINED DISORDER
  2. MONTELUKAST SODIUM (MONTELUKAST SODIUM) [Concomitant]
  3. PHENOBARBITAL TAB [Concomitant]
  4. ALL OTHER THERAPEUTIC PRODUCTS (ALL OTHER THERAPEUTIC PRODUCTS) [Concomitant]

REACTIONS (1)
  - CONVULSION [None]
